FAERS Safety Report 11091735 (Version 3)
Quarter: 2015Q4

REPORT INFORMATION
  Report Type: Spontaneous
  Country: CH (occurrence: PL)
  Receive Date: 20150505
  Receipt Date: 20151116
  Transmission Date: 20160304
  Serious: Yes (Hospitalization)
  Sender: FDA-Public Use
  Company Number: CH-LPDUSPRD-20150201

PATIENT
  Age: 68 Year
  Sex: Male
  Weight: 74 kg

DRUGS (10)
  1. INSULIN HUMULIN N [Concomitant]
     Dosage: 16 IU (5 MIN)
     Route: 065
     Dates: start: 20120110
  2. BISORATIO [Concomitant]
     Route: 065
     Dates: start: 20130909
  3. AMLODIPINE [Concomitant]
     Active Substance: AMLODIPINE BESYLATE
     Route: 065
     Dates: start: 20131203
  4. HUMALOG [Concomitant]
     Active Substance: INSULIN LISPRO
     Dosage: 40 IU (5 MIN)
     Route: 065
     Dates: start: 20120110
  5. VENOFER [Suspect]
     Active Substance: IRON SUCROSE
     Dosage: 100 MG, 1 IN 1 MONTH IN 45 MIN
     Route: 042
     Dates: start: 20121008, end: 20150408
  6. HEPARYNA [Concomitant]
     Dosage: 40 MG OVER 4 HOURS
     Route: 065
     Dates: start: 20120110
  7. HUMALOG N [Concomitant]
     Active Substance: INSULIN LISPRO
     Route: 065
     Dates: start: 20120110
  8. POLPRIL [Concomitant]
     Active Substance: RAMIPRIL
     Route: 065
     Dates: start: 20121113
  9. FUROSEMIDE. [Concomitant]
     Active Substance: FUROSEMIDE
     Route: 065
     Dates: start: 20121113
  10. CALPEROS [Concomitant]
     Active Substance: CALCIUM CARBONATE
     Dosage: 1000 MG (500MG, 2 IN 1 D)
     Route: 065

REACTIONS (1)
  - Hepatitis C [Not Recovered/Not Resolved]

NARRATIVE: CASE EVENT DATE: 20150204
